FAERS Safety Report 16133678 (Version 1)
Quarter: 2019Q1

REPORT INFORMATION
  Report Type: Spontaneous
  Country: IT (occurrence: IT)
  Receive Date: 20190329
  Receipt Date: 20190329
  Transmission Date: 20190418
  Serious: Yes (Life-Threatening)
  Sender: FDA-Public Use
  Company Number: IT-ACCORD-116612

PATIENT
  Age: 58 Year
  Sex: Female

DRUGS (5)
  1. TORVAST [Concomitant]
     Active Substance: ATORVASTATIN
     Indication: HYPERCHOLESTEROLAEMIA
     Route: 048
  2. CISPLATIN ACCORD HEALTHCARE [Suspect]
     Active Substance: CISPLATIN
     Indication: OVARIAN CANCER
     Dosage: STRENGTH 1 MG / ML CONCENTRATE FOR SOLUTION
     Route: 042
     Dates: start: 20181030, end: 20181217
  3. CITALOPRAM [Concomitant]
     Active Substance: CITALOPRAM HYDROBROMIDE
     Indication: DEPRESSION
     Route: 048
  4. ZYLORIC [Concomitant]
     Active Substance: ALLOPURINOL
     Indication: HYPERURICAEMIA
     Dosage: STRENGTH 300 MG TABLETS
     Route: 048
  5. PLAUNAZIDE [Concomitant]
     Active Substance: HYDROCHLOROTHIAZIDE\OLMESARTAN MEDOXOMIL
     Indication: HYPERTENSION
     Dosage: STRENGTH 20 MG / 25 MG FILM-COATED TABLETS
     Route: 048

REACTIONS (1)
  - Hypersensitivity [Recovered/Resolved]

NARRATIVE: CASE EVENT DATE: 20181217
